FAERS Safety Report 4490025-2 (Version None)
Quarter: 2004Q4

REPORT INFORMATION
  Report Type: 
  Country: None (occurrence: None)
  Receive Date: 20041022
  Receipt Date: 20041005
  Transmission Date: 20050328
  Serious: Yes (Hospitalization, Disabling)
  Sender: FDA-Public Use
  Company Number: WAES 0410ZAF00004

PATIENT
  Age: 67 Year
  Sex: Male

DRUGS (7)
  1. VIOXX [Suspect]
     Indication: NEOPLASM PROPHYLAXIS
     Dosage: 25 MG/DAILY
     Route: 048
     Dates: start: 20031126, end: 20041005
  2. ATENOLOL [Concomitant]
  3. COLCHICINE [Concomitant]
  4. ENALAPRIL MALEATE AND HYDROCHLOROTHIAZIDE [Concomitant]
  5. GLICLAZIDE [Concomitant]
  6. INSULIN HUMAN, ISOPHANE [Concomitant]
  7. PRAZOSIN HCL [Concomitant]

REACTIONS (8)
  - ABSCESS LIMB [None]
  - BLOOD CHLORIDE DECREASED [None]
  - BLOOD CREATININE INCREASED [None]
  - BLOOD UREA INCREASED [None]
  - DIABETES MELLITUS INADEQUATE CONTROL [None]
  - HYPERTENSIVE HEART DISEASE [None]
  - PLATELET COUNT INCREASED [None]
  - WHITE BLOOD CELL COUNT INCREASED [None]
